FAERS Safety Report 8382569-8 (Version None)
Quarter: 2012Q2

REPORT INFORMATION
  Report Type: 
  Country: None (occurrence: None)
  Receive Date: 20120524
  Receipt Date: 20120522
  Transmission Date: 20120825
  Serious: Yes (Death)
  Sender: FDA-Public Use
  Company Number: US-CELGENEUS-163-21880-12050806

PATIENT
  Sex: Male

DRUGS (6)
  1. REVLIMID [Suspect]
     Dosage: 5 MILLIGRAM
     Route: 048
     Dates: start: 20120401
  2. DECADRON [Concomitant]
     Dosage: 40 MILLIGRAM
     Route: 065
  3. FUROSEMIDE [Concomitant]
     Dosage: 40 MILLIGRAM
     Route: 048
  4. REVLIMID [Suspect]
     Dosage: 5 MILLIGRAM
     Route: 048
     Dates: start: 20111201
  5. KLOR-CON [Concomitant]
     Dosage: 20 MILLIGRAM
     Route: 065
  6. REVLIMID [Suspect]
     Indication: MULTIPLE MYELOMA
     Dosage: 25 MILLIGRAM
     Route: 048
     Dates: start: 20110912

REACTIONS (1)
  - MULTIPLE MYELOMA [None]
